FAERS Safety Report 4526827-3 (Version None)
Quarter: 2004Q4

REPORT INFORMATION
  Report Type: 
  Country: None (occurrence: None)
  Receive Date: 20041213
  Receipt Date: 20041129
  Transmission Date: 20050328
  Serious: Yes (Hospitalization)
  Sender: FDA-Public Use
  Company Number: 2004103586

PATIENT
  Age: 72 Year
  Sex: Female

DRUGS (9)
  1. AMLODIPINE [Suspect]
     Indication: HYPERTENSION
     Dosage: 5 MG, ORAL
     Route: 048
     Dates: start: 19980101, end: 20040926
  2. ARICEPT [Suspect]
     Indication: DEMENTIA ALZHEIMER'S TYPE
     Dosage: 10 MG (1 IN 1 D), ORAL
     Route: 048
     Dates: start: 20010401, end: 20040926
  3. SERTRALINE HCL [Suspect]
     Indication: DEPRESSION
     Dosage: 50 MG (1 IN 1 D), ORAL
     Route: 048
     Dates: start: 20030505, end: 20040926
  4. QUINAPRIL HCL [Suspect]
     Indication: HYPERTENSION
     Dosage: 20 MG (1 IN 1 D), ORAL
     Route: 048
     Dates: start: 20040503, end: 20040926
  5. ASCORBIC ACID [Concomitant]
  6. BLINDED THERAPY (BLINDED THERAPY) [Concomitant]
  7. TOCOPHEROL CONCENTRATE CAP [Concomitant]
  8. MULTIVITAMINS (ASCORBIC ACID, ERGOCALCIFEROL, FOLIC ACID, NICOTINAMIDE [Concomitant]
  9. CALCIUM (CALCIUM) [Concomitant]

REACTIONS (2)
  - DIZZINESS [None]
  - MULTIPLE DRUG OVERDOSE [None]
